FAERS Safety Report 14274744 (Version 1)
Quarter: 2017Q4

REPORT INFORMATION
  Report Type: Spontaneous
  Country: DE (occurrence: DE)
  Receive Date: 20171212
  Receipt Date: 20171212
  Transmission Date: 20180321
  Serious: Yes (Other)
  Sender: FDA-Public Use
  Company Number: DE-TAKEDA-2017TEU005223

PATIENT

DRUGS (4)
  1. PIOGLITAZONE. [Suspect]
     Active Substance: PIOGLITAZONE
     Indication: HEPATOCELLULAR CARCINOMA
     Dosage: UNK
     Route: 048
  2. XELODA [Suspect]
     Active Substance: CAPECITABINE
     Indication: HEPATOCELLULAR CARCINOMA
     Dosage: UNK
     Route: 048
  3. ETORICOXIB [Suspect]
     Active Substance: ETORICOXIB
     Indication: HEPATOCELLULAR CARCINOMA
     Dosage: UNK
     Route: 048
  4. ROFECOXIB [Suspect]
     Active Substance: ROFECOXIB
     Indication: HEPATOCELLULAR CARCINOMA
     Dosage: UNK
     Route: 048

REACTIONS (8)
  - Palmar-plantar erythrodysaesthesia syndrome [Unknown]
  - Ascites [Unknown]
  - Anaemia [Unknown]
  - Diarrhoea [Unknown]
  - Oedema [Unknown]
  - Decreased appetite [Unknown]
  - Renal failure [Unknown]
  - Leukopenia [Unknown]
